FAERS Safety Report 23464891 (Version 1)
Quarter: 2024Q1

REPORT INFORMATION
  Report Type: Report from Study
  Country: SA (occurrence: None)
  Receive Date: 20240201
  Receipt Date: 20240201
  Transmission Date: 20240410
  Serious: Yes (Hospitalization)
  Sender: FDA-Public Use
  Company Number: 2024A021992

PATIENT
  Age: 23 Year
  Sex: Female

DRUGS (1)
  1. FASENRA [Suspect]
     Active Substance: BENRALIZUMAB
     Indication: Asthma
     Route: 058
     Dates: start: 20240124

REACTIONS (4)
  - Dizziness [Unknown]
  - Nausea [Unknown]
  - Hyperhidrosis [Unknown]
  - Movement disorder [Unknown]
